FAERS Safety Report 8988251 (Version 1)
Quarter: 2012Q4

REPORT INFORMATION
  Report Type: 
  Country: US (occurrence: US)
  Receive Date: 20121227
  Receipt Date: 20121227
  Transmission Date: 20130627
  Serious: Yes (Other)
  Sender: FDA-Public Use
  Company Number: US-ASTELLAS-2012US012540

PATIENT
  Age: 59 Year
  Sex: Male
  Weight: 111 kg

DRUGS (1)
  1. VESICARE [Suspect]
     Indication: PRODUCT USED FOR UNKNOWN INDICATION
     Dosage: 5 mg, UID/QD
     Route: 048
     Dates: start: 20121214

REACTIONS (8)
  - Malaise [Unknown]
  - Migraine [Unknown]
  - Chills [Unknown]
  - Hot flush [Unknown]
  - Nasal discomfort [Unknown]
  - Muscle spasms [Unknown]
  - Abdominal pain [Unknown]
  - Muscular weakness [Unknown]
